FAERS Safety Report 4960282-4 (Version None)
Quarter: 2006Q1

REPORT INFORMATION
  Report Type: 
  Country: None (occurrence: None)
  Receive Date: 20060328
  Receipt Date: 20060316
  Transmission Date: 20060701
  Serious: Yes (Disabling)
  Sender: FDA-Public Use
  Company Number: 2006038496

PATIENT
  Sex: Female

DRUGS (2)
  1. EPELIN KAPSEALS (PHENYTOIN SODIUM) [Suspect]
     Indication: CONVULSION
     Dosage: 200 MG (100 MG, 2 IN 1 D) ORAL
     Route: 048
     Dates: end: 20060101
  2. ALL OTHER THERAPEUTIC PRODUCTS [Concomitant]

REACTIONS (5)
  - APHASIA [None]
  - CEREBROVASCULAR DISORDER [None]
  - CONDITION AGGRAVATED [None]
  - CONVULSION [None]
  - QUADRIPLEGIA [None]
